FAERS Safety Report 10178232 (Version 1)
Quarter: 2014Q2

REPORT INFORMATION
  Report Type: Spontaneous
  Country: EG (occurrence: EG)
  Receive Date: 20140519
  Receipt Date: 20140519
  Transmission Date: 20141212
  Serious: Yes (Other)
  Sender: FDA-Public Use
  Company Number: EG-BRISTOL-MYERS SQUIBB COMPANY-20703328

PATIENT
  Sex: 0

DRUGS (1)
  1. ABILIFY TABS [Suspect]

REACTIONS (1)
  - Psychiatric decompensation [Unknown]
